FAERS Safety Report 7597796-7 (Version None)
Quarter: 2011Q3

REPORT INFORMATION
  Report Type: 
  Country: None (occurrence: None)
  Receive Date: 20110708
  Receipt Date: 20110628
  Transmission Date: 20111222
  Serious: Yes (Other)
  Sender: FDA-Public Use
  Company Number: CA-GENENTECH-319076

PATIENT
  Sex: Female

DRUGS (8)
  1. RITUXAN [Suspect]
     Indication: CHRONIC LYMPHOCYTIC LEUKAEMIA
     Dosage: UNK
     Route: 042
  2. ACRIVASTINE [Concomitant]
     Indication: PREMEDICATION
  3. CALAMINE [Concomitant]
     Indication: PREMEDICATION
  4. CODEINE [Concomitant]
     Indication: PREMEDICATION
  5. BENADRYL COUGH MEDICINE [Concomitant]
     Indication: PREMEDICATION
     Dosage: UNK
  6. ACETAMINOPHEN [Concomitant]
     Indication: PREMEDICATION
     Dosage: UNK
  7. CAMPHOR + MENTHOL [Concomitant]
     Indication: PREMEDICATION
  8. ZINC [Concomitant]
     Indication: PREMEDICATION

REACTIONS (1)
  - HYPERSENSITIVITY [None]
